FAERS Safety Report 25305820 (Version 4)
Quarter: 2025Q3

REPORT INFORMATION
  Report Type: Report from Study
  Country: US (occurrence: US)
  Receive Date: 20250513
  Receipt Date: 20250728
  Transmission Date: 20251020
  Serious: Yes (Hospitalization, Other)
  Sender: TAKEDA
  Company Number: US-TAKEDA-2025TUS044532

PATIENT
  Sex: Female

DRUGS (4)
  1. TEDUGLUTIDE [Suspect]
     Active Substance: TEDUGLUTIDE
     Indication: Short-bowel syndrome
     Dosage: 0.61 MILLILITER, QD
     Dates: start: 20250418, end: 20250515
  2. TEDUGLUTIDE [Suspect]
     Active Substance: TEDUGLUTIDE
     Dosage: 0.61 MILLILITER, QD
     Dates: start: 202504
  3. TEDUGLUTIDE [Suspect]
     Active Substance: TEDUGLUTIDE
  4. TEDUGLUTIDE [Suspect]
     Active Substance: TEDUGLUTIDE

REACTIONS (10)
  - Volvulus [Unknown]
  - Thrombosis [Unknown]
  - Pulmonary embolism [Unknown]
  - Weight increased [Unknown]
  - Peripheral swelling [Unknown]
  - Retching [Unknown]
  - Fluid retention [Unknown]
  - Influenza like illness [Unknown]
  - Nausea [Unknown]
  - Abdominal pain upper [Unknown]
